FAERS Safety Report 11298247 (Version 1)
Quarter: 2015Q3

REPORT INFORMATION
  Report Type: Spontaneous
  Country: US (occurrence: US)
  Receive Date: 20150722
  Receipt Date: 20150722
  Transmission Date: 20151125
  Serious: No
  Sender: FDA-Public Use
  Company Number: US-ELI_LILLY_AND_COMPANY-US201106007706

PATIENT
  Sex: Male

DRUGS (2)
  1. PREDNISONE. [Concomitant]
     Active Substance: PREDNISONE
     Indication: ANAEMIA
     Dosage: UNK
  2. HUMATROPE [Suspect]
     Active Substance: SOMATROPIN
     Dosage: 3 MG, UNKNOWN
     Dates: start: 2008

REACTIONS (2)
  - Blood count abnormal [Unknown]
  - Malaise [Unknown]
